FAERS Safety Report 10747834 (Version 3)
Quarter: 2015Q3

REPORT INFORMATION
  Report Type: Spontaneous
  Country: US (occurrence: US)
  Receive Date: 20150129
  Receipt Date: 20150723
  Transmission Date: 20151125
  Serious: No
  Sender: FDA-Public Use
  Company Number: US-PFIZER INC-2015036140

PATIENT
  Age: 40 Year
  Sex: Female
  Weight: 79 kg

DRUGS (1)
  1. DILANTIN [Suspect]
     Active Substance: PHENYTOIN
     Dosage: UNK
     Dates: start: 1969

REACTIONS (1)
  - Tremor [Unknown]

NARRATIVE: CASE EVENT DATE: 1987
